FAERS Safety Report 24619191 (Version 1)
Quarter: 2024Q4

REPORT INFORMATION
  Report Type: Spontaneous
  Country: US (occurrence: US)
  Receive Date: 20241114
  Receipt Date: 20241114
  Transmission Date: 20250114
  Serious: No
  Sender: CURRAX PHARMACEUTICALS
  Company Number: US-CURRAX PHARMACEUTICALS LLC-US-2023CUR004693

PATIENT
  Age: 33 Year
  Sex: Female

DRUGS (6)
  1. CONTRAVE [Suspect]
     Active Substance: BUPROPION HYDROCHLORIDE\NALTREXONE HYDROCHLORIDE
     Indication: Obesity
     Dosage: STRENGTH: 8/90 MG, WEEK1: 1 PILL IN THE MORNING DAILY
     Route: 048
     Dates: start: 20231003, end: 20231009
  2. CONTRAVE [Suspect]
     Active Substance: BUPROPION HYDROCHLORIDE\NALTREXONE HYDROCHLORIDE
     Dosage: STRENGTH: 8/90 MG, WEEK 2: 1 PILL IN THE MORNING, 1 PILL IN THE EVENING, DAILY
     Route: 048
     Dates: start: 20231010, end: 20231016
  3. CONTRAVE [Suspect]
     Active Substance: BUPROPION HYDROCHLORIDE\NALTREXONE HYDROCHLORIDE
     Dosage: STRENGTH: 8/90 MG, WEEK 3: 2 PILLS IN THE MORNING, 1 PILL IN THE EVENING, DAILY
     Route: 048
     Dates: start: 20231017, end: 20231023
  4. CONTRAVE [Suspect]
     Active Substance: BUPROPION HYDROCHLORIDE\NALTREXONE HYDROCHLORIDE
     Dosage: STRENGTH: 8/90 MG, WEEK 4: 2 PILLS IN THE MORNING, 2 PILLS IN THE EVENING, DAILY
     Route: 048
     Dates: start: 20231024, end: 2023
  5. CONTRAVE [Suspect]
     Active Substance: BUPROPION HYDROCHLORIDE\NALTREXONE HYDROCHLORIDE
     Dosage: STRENGTH: 8/90 MG, DOSE REDUCED TO 2 PILLS A DAY
     Route: 048
     Dates: start: 20231103, end: 202311
  6. CONTRAVE [Suspect]
     Active Substance: BUPROPION HYDROCHLORIDE\NALTREXONE HYDROCHLORIDE
     Dosage: STRENGTH: 8/90 MG, 1 PILL PER DAY
     Route: 048
     Dates: start: 202311

REACTIONS (1)
  - Tinnitus [Not Recovered/Not Resolved]

NARRATIVE: CASE EVENT DATE: 20231001
